FAERS Safety Report 11898861 (Version 7)
Quarter: 2017Q1

REPORT INFORMATION
  Report Type: Report from Study
  Country: US (occurrence: US)
  Receive Date: 20160108
  Receipt Date: 20170203
  Transmission Date: 20170428
  Serious: Yes (Hospitalization, Other)
  Sender: FDA-Public Use
  Company Number: US-SA-2015SA219734

PATIENT
  Age: 38 Year
  Sex: Female

DRUGS (12)
  1. LEMTRADA [Suspect]
     Active Substance: ALEMTUZUMAB
     Indication: MULTIPLE SCLEROSIS
     Route: 041
     Dates: start: 20151214, end: 20151218
  2. METOPROLOL. [Concomitant]
     Active Substance: METOPROLOL
  3. FUROSEMIDE. [Concomitant]
     Active Substance: FUROSEMIDE
  4. ALPRAZOLAM. [Concomitant]
     Active Substance: ALPRAZOLAM
  5. XIFAXAN [Concomitant]
     Active Substance: RIFAXIMIN
  6. SYNTHROID [Concomitant]
     Active Substance: LEVOTHYROXINE SODIUM
  7. SPIRONOLACTONE. [Concomitant]
     Active Substance: SPIRONOLACTONE
  8. OMEPRAZOLE. [Concomitant]
     Active Substance: OMEPRAZOLE
  9. BACLOFEN. [Concomitant]
     Active Substance: BACLOFEN
  10. ACYCLOVIR. [Concomitant]
     Active Substance: ACYCLOVIR
  11. ATORVASTATIN [Concomitant]
     Active Substance: ATORVASTATIN
  12. KLOR-CON [Concomitant]
     Active Substance: POTASSIUM CHLORIDE

REACTIONS (27)
  - Infected cyst [Unknown]
  - Hepatic cirrhosis [Recovered/Resolved]
  - Ammonia increased [Not Recovered/Not Resolved]
  - Flushing [Unknown]
  - Fungal infection [Unknown]
  - Rash pruritic [Not Recovered/Not Resolved]
  - Arthritis [Not Recovered/Not Resolved]
  - Pyrexia [Unknown]
  - Haemochromatosis [Recovered/Resolved]
  - Rash macular [Not Recovered/Not Resolved]
  - Abdominal cavity drainage [Unknown]
  - Infection [Unknown]
  - Pancreatitis [Recovered/Resolved]
  - Abdominal pain [Recovered/Resolved]
  - Feeding disorder [Not Recovered/Not Resolved]
  - Sepsis [Recovered/Resolved]
  - Condition aggravated [Not Recovered/Not Resolved]
  - Renal failure [Unknown]
  - Urinary tract infection [Not Recovered/Not Resolved]
  - Blood glucose increased [Not Recovered/Not Resolved]
  - Dry skin [Not Recovered/Not Resolved]
  - Fungal infection [Unknown]
  - Diabetes mellitus [Unknown]
  - Nausea [Unknown]
  - Pain [Unknown]
  - Lipids abnormal [Unknown]
  - Fibromyalgia [Not Recovered/Not Resolved]

NARRATIVE: CASE EVENT DATE: 2015
